FAERS Safety Report 21338137 (Version 3)
Quarter: 2023Q1

REPORT INFORMATION
  Report Type: Spontaneous
  Country: US (occurrence: US)
  Receive Date: 20220915
  Receipt Date: 20230315
  Transmission Date: 20230417
  Serious: No
  Sender: FDA-Public Use
  Company Number: US-PFIZER INC-PV202200063539

PATIENT
  Age: 76 Year
  Sex: Female

DRUGS (2)
  1. IBRANCE [Suspect]
     Active Substance: PALBOCICLIB
     Indication: Breast cancer female
     Dosage: ONCE DAILY WITH OR WITHOUT FOOD FOR 21 DAYS ON AND 7 DAYS OFF
     Route: 048
     Dates: start: 20220831
  2. IBRANCE [Suspect]
     Active Substance: PALBOCICLIB
     Dosage: DOWN TO DOING 2 WEEKS ON AND A WEEK OFF

REACTIONS (5)
  - Abdominal discomfort [Not Recovered/Not Resolved]
  - Abdominal pain upper [Unknown]
  - Lip dry [Not Recovered/Not Resolved]
  - Stomatitis [Not Recovered/Not Resolved]
  - Off label use [Unknown]
